FAERS Safety Report 9552298 (Version 2)
Quarter: 2013Q4

REPORT INFORMATION
  Report Type: Spontaneous
  Country: DE (occurrence: DE)
  Receive Date: 20130925
  Receipt Date: 20131120
  Transmission Date: 20140711
  Serious: Yes (Life-Threatening, Hospitalization)
  Sender: FDA-Public Use
  Company Number: DE-JNJFOC-20130913926

PATIENT
  Sex: Female
  Weight: 92 kg

DRUGS (15)
  1. XARELTO [Suspect]
     Indication: CEREBROVASCULAR ACCIDENT PROPHYLAXIS
     Route: 048
     Dates: start: 20130122, end: 201308
  2. XARELTO [Suspect]
     Indication: MYOCARDIAL INFARCTION
     Route: 048
     Dates: start: 20130122, end: 201308
  3. XARELTO [Suspect]
     Indication: ATRIAL FIBRILLATION
     Route: 048
     Dates: start: 20130122, end: 201308
  4. NEBIVOLOL [Concomitant]
     Route: 065
  5. GALVUS [Concomitant]
     Route: 065
  6. SIMVASTATIN [Concomitant]
     Route: 065
  7. HYDROCHLOROTHIAZIDE [Concomitant]
     Route: 065
  8. LANTUS [Concomitant]
     Route: 065
  9. ALLOPURINOL [Concomitant]
     Route: 065
  10. TILIDIN [Concomitant]
     Route: 065
  11. TORASEMID [Concomitant]
     Route: 065
  12. VILDAGLIPTIN [Concomitant]
     Route: 065
  13. PANTOPRAZOLE [Concomitant]
     Route: 065
  14. IRON COMPLEX [Concomitant]
     Route: 065
  15. ACETYLSALICYLIC ACID [Concomitant]
     Route: 065

REACTIONS (2)
  - Haemoglobin decreased [Unknown]
  - Iron deficiency anaemia [Recovered/Resolved]
